FAERS Safety Report 14058111 (Version 1)
Quarter: 2017Q4

REPORT INFORMATION
  Report Type: Spontaneous
  Country: CA (occurrence: CA)
  Receive Date: 20171006
  Receipt Date: 20171006
  Transmission Date: 20180321
  Serious: Yes (Other)
  Sender: FDA-Public Use
  Company Number: CA-PFIZER INC-2017425693

PATIENT
  Sex: Female

DRUGS (4)
  1. SERTRALINE HCL [Suspect]
     Active Substance: SERTRALINE HYDROCHLORIDE
     Dosage: 50 MG, 1X/DAY
     Dates: start: 1997
  2. CLONAZEPAM. [Concomitant]
     Active Substance: CLONAZEPAM
     Dosage: 0.5 MG, 2X/DAY
     Dates: start: 1997
  3. METHOTREXATE SODIUM. [Suspect]
     Active Substance: METHOTREXATE SODIUM
     Dosage: 9 MG, WEEKLY
     Dates: start: 1997
  4. METOPROLOL. [Concomitant]
     Active Substance: METOPROLOL
     Dosage: 50 MG 1/4 TAB, 2X/DAY
     Dates: start: 1997

REACTIONS (7)
  - Hypertension [Unknown]
  - Depression [Unknown]
  - Seizure [Unknown]
  - Hypercholesterolaemia [Unknown]
  - Colitis ulcerative [Recovered/Resolved]
  - Cerebrovascular accident [Unknown]
  - Fibromyalgia [Unknown]

NARRATIVE: CASE EVENT DATE: 1997
